FAERS Safety Report 7383683-6 (Version None)
Quarter: 2011Q1

REPORT INFORMATION
  Report Type: 
  Country: None (occurrence: None)
  Receive Date: 20110330
  Receipt Date: 20110321
  Transmission Date: 20110831
  Serious: Yes (Other)
  Sender: FDA-Public Use
  Company Number: FR-ROCHE-752344

PATIENT
  Sex: Male

DRUGS (2)
  1. XYZAL [Concomitant]
  2. MIRCERA [Suspect]
     Dosage: FREQUENCY: ONCE
     Route: 058
     Dates: start: 20101008, end: 20101008

REACTIONS (2)
  - PRURITUS [None]
  - RASH MACULO-PAPULAR [None]
